FAERS Safety Report 16772411 (Version 1)
Quarter: 2019Q4

REPORT INFORMATION
  Report Type: Spontaneous
  Country: US (occurrence: US)
  Receive Date: 20190904
  Receipt Date: 20190904
  Transmission Date: 20200122
  Serious: Yes (Hospitalization)
  Sender: FDA-Public Use
  Company Number: None

PATIENT
  Age: 33 Year
  Sex: Female
  Weight: 55 kg

DRUGS (1)
  1. COPAXONE [Suspect]
     Active Substance: GLATIRAMER ACETATE
     Indication: DEMYELINATION
     Dosage: ?          OTHER FREQUENCY:3 TIMES WEEKLY;?
     Route: 058

REACTIONS (2)
  - Condition aggravated [None]
  - Vulvar dysplasia [None]

NARRATIVE: CASE EVENT DATE: 20190207
